FAERS Safety Report 9098639 (Version 1)
Quarter: 2013Q1

REPORT INFORMATION
  Report Type: Spontaneous
  Country: US (occurrence: US)
  Receive Date: 20130213
  Receipt Date: 20130213
  Transmission Date: 20140127
  Serious: No
  Sender: FDA-Public Use
  Company Number: US-ALLERGAN-1218024US

PATIENT
  Age: 62 Year
  Sex: Female

DRUGS (2)
  1. LASTACAFT [Suspect]
     Indication: DRY EYE
     Dosage: 2 GTT, QD
     Route: 047
  2. LASTACAFT [Suspect]
     Indication: EYE PRURITUS
     Dosage: 2 GTT, QD
     Route: 047

REACTIONS (5)
  - Ocular hyperaemia [Recovered/Resolved]
  - Eye pain [Unknown]
  - Instillation site pain [Recovered/Resolved]
  - Scleral hyperaemia [Unknown]
  - Eye pain [Recovered/Resolved]
